FAERS Safety Report 9767314 (Version 1)
Quarter: 2013Q4

REPORT INFORMATION
  Report Type: Spontaneous
  Country: US (occurrence: None)
  Receive Date: 20131216
  Receipt Date: 20131216
  Transmission Date: 20140711
  Serious: No
  Sender: FDA-Public Use
  Company Number: None

PATIENT
  Age: 58 Year
  Sex: Male
  Weight: 123.8 kg

DRUGS (1)
  1. MAGNESIUM SULFATE [Suspect]
     Indication: HYPOMAGNESAEMIA
     Route: 042
     Dates: start: 20131205, end: 20131205

REACTIONS (1)
  - Rash [None]
